FAERS Safety Report 21909124 (Version 1)
Quarter: 2023Q1

REPORT INFORMATION
  Report Type: Spontaneous
  Country: US (occurrence: US)
  Receive Date: 20230125
  Receipt Date: 20230125
  Transmission Date: 20230418
  Serious: No
  Sender: FDA-Public Use
  Company Number: US-BoehringerIngelheim-2023-BI-214295

PATIENT
  Age: 66 Year
  Sex: Male
  Weight: 100 kg

DRUGS (3)
  1. MOBIC [Suspect]
     Active Substance: MELOXICAM
     Indication: Arthralgia
     Dates: start: 202212, end: 202301
  2. MOBIC [Suspect]
     Active Substance: MELOXICAM
     Indication: Arthritis
  3. LORBRENA [Suspect]
     Active Substance: LORLATINIB
     Indication: Lung neoplasm malignant
     Route: 048
     Dates: start: 202112

REACTIONS (5)
  - Off label use [Recovered/Resolved]
  - Back pain [Recovering/Resolving]
  - Troponin increased [Recovering/Resolving]
  - Neuropathy peripheral [Unknown]
  - Peripheral swelling [Unknown]

NARRATIVE: CASE EVENT DATE: 20221201
